FAERS Safety Report 25985425 (Version 2)
Quarter: 2025Q4

REPORT INFORMATION
  Report Type: Spontaneous
  Country: US (occurrence: US)
  Receive Date: 20251031
  Receipt Date: 20251119
  Transmission Date: 20260117
  Serious: No
  Sender: BAYER HEALTHCARE PHARMACEUTICALS INC.
  Company Number: US-BAYER-2025A139881

PATIENT
  Age: 67 Year
  Sex: Female

DRUGS (3)
  1. KERENDIA [Suspect]
     Active Substance: FINERENONE
     Dosage: 20 MG
     Dates: start: 20251018, end: 20251021
  2. KERENDIA [Suspect]
     Active Substance: FINERENONE
     Dosage: TABLET IN HALF, TAKING 10 MG
  3. MOUNJARO [Suspect]
     Active Substance: TIRZEPATIDE
     Indication: Weight decreased

REACTIONS (4)
  - Nausea [Recovered/Resolved]
  - Illness [Not Recovered/Not Resolved]
  - Wrong technique in product usage process [None]
  - Product prescribing issue [None]

NARRATIVE: CASE EVENT DATE: 20251018
